FAERS Safety Report 14727184 (Version 2)
Quarter: 2018Q4

REPORT INFORMATION
  Report Type: Spontaneous
  Country: US (occurrence: US)
  Receive Date: 20180406
  Receipt Date: 20181219
  Transmission Date: 20190204
  Serious: Yes (Other)
  Sender: FDA-Public Use
  Company Number: US-GLAXOSMITHKLINE-US2018GSK058801

PATIENT
  Sex: Male
  Weight: 88 kg

DRUGS (3)
  1. PREVACID [Suspect]
     Active Substance: LANSOPRAZOLE
     Indication: PRODUCT USED FOR UNKNOWN INDICATION
     Dosage: UNK
     Route: 065
  2. PREVACID [Suspect]
     Active Substance: LANSOPRAZOLE
     Indication: PRODUCT USED FOR UNKNOWN INDICATION
     Dosage: UNK
     Route: 065
  3. PANTOPRAZOLE [Suspect]
     Active Substance: PANTOPRAZOLE
     Indication: GASTROOESOPHAGEAL REFLUX DISEASE
     Dosage: 40 MG, BID
     Route: 048

REACTIONS (19)
  - Acute kidney injury [Unknown]
  - Renal failure [Unknown]
  - Nephrosclerosis [Unknown]
  - Hypertensive nephropathy [Unknown]
  - Device dependence [Unknown]
  - Dialysis [Unknown]
  - Chronic kidney disease-mineral and bone disorder [Unknown]
  - Urinoma [Unknown]
  - Chronic kidney disease [Unknown]
  - Renal atrophy [Unknown]
  - Renal impairment [Unknown]
  - Renal haematoma [Unknown]
  - Renal transplant [Unknown]
  - Haemodialysis [Unknown]
  - Perinephric collection [Unknown]
  - Proteinuria [Unknown]
  - Kidney small [Unknown]
  - End stage renal disease [Unknown]
  - Nephrogenic anaemia [Unknown]
